FAERS Safety Report 12954287 (Version 1)
Quarter: 2016Q4

REPORT INFORMATION
  Report Type: Spontaneous
  Country: US (occurrence: US)
  Receive Date: 20161117
  Receipt Date: 20161117
  Transmission Date: 20170207
  Serious: Yes (Other)
  Sender: FDA-Public Use
  Company Number: US--2016-US-000026

PATIENT
  Age: 69 Year
  Sex: Male
  Weight: 95.26 kg

DRUGS (4)
  1. UNKNOWN [Concomitant]
     Active Substance: UNSPECIFIED INGREDIENT
     Indication: PRODUCT USED FOR UNKNOWN INDICATION
     Dosage: TEN MILLIGRAMS ONCE DAILY
     Route: 048
     Dates: start: 1992
  2. UNKNOWN [Concomitant]
     Active Substance: UNSPECIFIED INGREDIENT
     Dosage: 40 MG ONCE DAILY
     Dates: start: 1992
  3. LOSARTAN POTASSIUM TABLETS USP, 100 MG (VIVIMED ) [Suspect]
     Active Substance: LOSARTAN POTASSIUM
     Indication: HYPERTENSION
     Dosage: 100 MILLIGRAM ONCE DAILY
     Route: 048
     Dates: start: 20160801, end: 20160808
  4. UNKNOWN [Concomitant]
     Active Substance: UNSPECIFIED INGREDIENT
     Dosage: 145 MG ONCE DAILY
     Dates: start: 1992

REACTIONS (3)
  - Hypertension [Unknown]
  - Product substitution issue [Recovered/Resolved]
  - Chest pain [Unknown]

NARRATIVE: CASE EVENT DATE: 20160808
